FAERS Safety Report 7353920-2 (Version None)
Quarter: 2011Q1

REPORT INFORMATION
  Report Type: 
  Country: None (occurrence: None)
  Receive Date: 20110315
  Receipt Date: 20110301
  Transmission Date: 20110831
  Serious: Yes (Hospitalization)
  Sender: FDA-Public Use
  Company Number: PHHY2011GR16536

PATIENT
  Age: 60 Year
  Sex: Male

DRUGS (5)
  1. TASIGNA [Suspect]
     Indication: MASTOCYTOSIS
     Dosage: UNK
  2. QUINOLONE NOS [Concomitant]
  3. ANTIBIOTICS [Concomitant]
  4. LASIX [Concomitant]
  5. DILATREND [Concomitant]

REACTIONS (2)
  - TOXIC EPIDERMAL NECROLYSIS [None]
  - RASH GENERALISED [None]
